FAERS Safety Report 8167102-8 (Version None)
Quarter: 2012Q1

REPORT INFORMATION
  Report Type: 
  Country: None (occurrence: None)
  Receive Date: 20120227
  Receipt Date: 20120216
  Transmission Date: 20120608
  Serious: Yes (Hospitalization)
  Sender: FDA-Public Use
  Company Number: US-BAYER-2011-006780

PATIENT
  Age: 41 Year
  Sex: Female
  Weight: 117.91 kg

DRUGS (8)
  1. YAZ [Suspect]
     Indication: CONTRACEPTION
  2. DROSPIRENONE AND ETHINYL ESTRADIOL [Suspect]
     Indication: ACNE
     Dosage: UNK
     Dates: start: 20050101, end: 20100901
  3. YAZ [Suspect]
     Indication: ACNE
     Dosage: UNK
     Dates: start: 20050101, end: 20100901
  4. DROSPIRENONE AND ETHINYL ESTRADIOL [Suspect]
     Indication: CONTRACEPTION
  5. YASMIN [Suspect]
     Indication: CONTRACEPTION
  6. SPIRONOLACTONE [Concomitant]
     Indication: ACNE
     Dosage: UNK
     Route: 048
     Dates: start: 20070301, end: 20091201
  7. YASMIN [Suspect]
     Indication: ACNE
     Dosage: UNK
     Dates: start: 20050101, end: 20100901
  8. LEXAPRO [Concomitant]
     Indication: DEPRESSION
     Dosage: 10 MG, QD
     Route: 048
     Dates: start: 20091228, end: 20100117

REACTIONS (16)
  - HEART RATE INCREASED [None]
  - RESPIRATORY ARREST [None]
  - FEAR [None]
  - DIZZINESS [None]
  - LOSS OF CONSCIOUSNESS [None]
  - DIARRHOEA [None]
  - VOMITING [None]
  - CHEST PAIN [None]
  - PAIN [None]
  - FLUSHING [None]
  - HEART RATE IRREGULAR [None]
  - DISORIENTATION [None]
  - ANXIETY [None]
  - EMOTIONAL DISTRESS [None]
  - PULMONARY EMBOLISM [None]
  - FEELING HOT [None]
